FAERS Safety Report 12991011 (Version 7)
Quarter: 2017Q2

REPORT INFORMATION
  Report Type: Report from Study
  Country: AT (occurrence: AT)
  Receive Date: 20161201
  Receipt Date: 20170509
  Transmission Date: 20170830
  Serious: Yes (Hospitalization, Other)
  Sender: FDA-Public Use
  Company Number: AT-BAXTER-2016BAX059645

PATIENT
  Age: 68 Year
  Sex: Male

DRUGS (54)
  1. VINCRISTINE [Suspect]
     Active Substance: VINCRISTINE
     Indication: B-CELL LYMPHOMA
     Route: 042
     Dates: start: 20160902
  2. PREDNISONE. [Suspect]
     Active Substance: PREDNISONE
     Dosage: DAYS 1-5 OF EACH CYCLE, MOST RECENT DOSE PRIOR TO ONSET OF FIRST EPISODE OF POST MICTURITION SYNCOPE
     Route: 048
     Dates: start: 20161018
  3. SIMVASTATIN. [Concomitant]
     Active Substance: SIMVASTATIN
     Indication: HYPERLIPIDAEMIA
     Route: 065
  4. OLEOVIT D3 [Concomitant]
     Active Substance: CHOLECALCIFEROL
     Indication: PRODUCT USED FOR UNKNOWN INDICATION
     Route: 065
     Dates: start: 20160902
  5. KCL ZYMA [Concomitant]
     Indication: PRODUCT USED FOR UNKNOWN INDICATION
     Route: 065
     Dates: start: 201609
  6. LOVENOX [Concomitant]
     Active Substance: ENOXAPARIN SODIUM
     Indication: THROMBOSIS PROPHYLAXIS
     Route: 065
     Dates: start: 20160902, end: 20160905
  7. LOVENOX [Concomitant]
     Active Substance: ENOXAPARIN SODIUM
     Route: 065
     Dates: start: 20161014, end: 20161014
  8. ENDOXAN ^BAXTER^ 1G - TROCKENSTECHAMPULLE [Suspect]
     Active Substance: CYCLOPHOSPHAMIDE
     Dosage: MOST RECENT DOSE PRIOR TO ONSET OF COMMON COLD AND THIRD FEBRILE NEUTROPENIA
     Route: 042
     Dates: start: 20161128
  9. RITUXIMAB [Suspect]
     Active Substance: RITUXIMAB
     Dosage: MOST RECENT DOSE PRIOR TO ONSET OF FIRST EPISODE OF POST MICTURITION SYNCOPE (PREVIOUSLY WAS SYNCOPE
     Route: 042
     Dates: start: 20161014
  10. RITUXIMAB [Suspect]
     Active Substance: RITUXIMAB
     Dosage: 375MG/M2; MOST RECENT DOSE PRIOR TO POST MICTURITION SYNCOPE SECOND EPISODE
     Route: 042
     Dates: start: 20161107
  11. DOXORUBICIN [Suspect]
     Active Substance: DOXORUBICIN
     Dosage: 50 MG/M2; MOST RECENT DOSE PRIOR POST MICTURITION SYNCOPE SECOND EPISODE
     Route: 042
     Dates: start: 20161107
  12. VENETOCLAX [Suspect]
     Active Substance: VENETOCLAX
     Indication: B-CELL LYMPHOMA
     Dosage: MOST RECENT DOSE PRIOR TO ONSET SECOND EPISODE OF FEBRILE NEUTROPENIA
     Route: 048
     Dates: start: 20160905
  13. VENETOCLAX [Suspect]
     Active Substance: VENETOCLAX
     Dosage: MOST RECENT DOSE PRIOR TO ONSET OF COMMON COLD AND THIRD FEBRILE NEUTROPENIA (THERAPY END DATE:DEC20
     Route: 048
     Dates: start: 20161207
  14. PANTOLOC [Concomitant]
     Active Substance: PANTOPRAZOLE SODIUM
     Indication: PROPHYLAXIS
     Route: 065
  15. ALLOPURINOL. [Concomitant]
     Active Substance: ALLOPURINOL
     Indication: PROPHYLAXIS
     Route: 065
     Dates: start: 20160902
  16. ENDOXAN ^BAXTER^ 1G - TROCKENSTECHAMPULLE [Suspect]
     Active Substance: CYCLOPHOSPHAMIDE
     Dosage: 750 MG/M2; MOST RECENT DOSE PRIOR TO ONSET OF FIRST EPISODE OF SYNCOPE AND FEBRILE NEUTROPENIA AND I
     Route: 042
     Dates: start: 20161014
  17. VENETOCLAX [Suspect]
     Active Substance: VENETOCLAX
     Dosage: MOST RECENT DOSE PRIOR TO ONSET OF FIRST EPISODE POST MICTURITION SYNCOPE (PREVIOUSLY WAS SYNCOPE)
     Route: 048
     Dates: start: 20161020
  18. AMLODIPINE [Concomitant]
     Active Substance: AMLODIPINE BESYLATE
     Indication: HYPERTENSION
     Route: 065
  19. METOHEXAL [Concomitant]
     Active Substance: METOPROLOL SUCCINATE
     Indication: CARDIAC FAILURE
     Route: 065
  20. ELO-MEL [Concomitant]
     Active Substance: CALCIUM CHLORIDE\MAGNESIUM CHLORIDE\POTASSIUM CHLORIDE\SODIUM ACETATE\SODIUM CHLORIDE
     Indication: ELECTROLYTE SUBSTITUTION THERAPY
     Route: 065
     Dates: start: 20160902, end: 20160906
  21. ENDOXAN ^BAXTER^ 1G - TROCKENSTECHAMPULLE [Suspect]
     Active Substance: CYCLOPHOSPHAMIDE
     Indication: B-CELL LYMPHOMA
     Route: 042
     Dates: start: 20160902
  22. DOXORUBICIN [Suspect]
     Active Substance: DOXORUBICIN
     Dosage: MOST RECENT DOSE PRIOR TO ONSET OF FIRST EPISODE OF POST MICTURITION SYNCOPE (PREVIOUSLY WAS SYNCOPE
     Route: 042
     Dates: start: 20161014
  23. DOXORUBICIN [Suspect]
     Active Substance: DOXORUBICIN
     Dosage: MOST RECENT DOSE PRIOR TO ONSET OF COMMON COLD AND THIRD FEBRILE NEUTROPENIA
     Route: 042
     Dates: start: 20161128
  24. DOXORUBICIN [Suspect]
     Active Substance: DOXORUBICIN
     Dosage: 50 MG/M2; MOST RECENT DOSE PRIOR TO INFLUENZA INFECTION
     Route: 042
     Dates: start: 20161220
  25. ACEMIN [Concomitant]
     Active Substance: LISINOPRIL
     Indication: HYPERTENSION
     Route: 065
  26. ENDOXAN ^BAXTER^ 1G - TROCKENSTECHAMPULLE [Suspect]
     Active Substance: CYCLOPHOSPHAMIDE
     Dosage: 750 MG/M2; MOST RECENT DOSE 1500 MG PRIOR TO ONSET OF SECOND EPISODE OF SYNCOPE AND SECOND EPISODE O
     Route: 042
     Dates: start: 20161107
  27. ENDOXAN ^BAXTER^ 1G - TROCKENSTECHAMPULLE [Suspect]
     Active Substance: CYCLOPHOSPHAMIDE
     Dosage: 750 MG/M2; MOST RECENT DOSE OF CYCLOPHOSPHAMIDE PRIOR TO INFLUENZA INFECTION
     Route: 042
     Dates: start: 20161220
  28. RITUXIMAB [Suspect]
     Active Substance: RITUXIMAB
     Dosage: MOST RECENT DOSE PRIOR COMMON COLD AND THIRD FEBRILE NEUTROPENIA
     Route: 042
     Dates: start: 20161128
  29. DOXORUBICIN [Suspect]
     Active Substance: DOXORUBICIN
     Indication: B-CELL LYMPHOMA
     Route: 042
     Dates: start: 20160902
  30. VENETOCLAX [Suspect]
     Active Substance: VENETOCLAX
     Dosage: MOST RECENT DOSE PRIOR TO ONSET OF POST MICTURITION SYNCOPE (SECOND EPISODE)
     Route: 048
     Dates: start: 20161116
  31. CITALOPRAM [Concomitant]
     Active Substance: CITALOPRAM HYDROBROMIDE
     Indication: DEPRESSION
     Route: 065
  32. RATIOGRASTIM [Concomitant]
     Active Substance: FILGRASTIM
     Indication: PRODUCT USED FOR UNKNOWN INDICATION
     Route: 065
     Dates: start: 20160906, end: 20160910
  33. BURONIL [Concomitant]
     Active Substance: MELPERONE HYDROCHLORIDE
     Indication: SLEEP DISORDER THERAPY
     Route: 065
     Dates: start: 20161014, end: 20161014
  34. VINCRISTINE [Suspect]
     Active Substance: VINCRISTINE
     Dosage: 1.4MG/M2; MOST RECENT DOSE PRIOR POST MICTURITION SYNCOPE SECOND EPISODE
     Route: 042
     Dates: start: 20161107
  35. PREDNISONE. [Suspect]
     Active Substance: PREDNISONE
     Dosage: DAY 1-5 OF EACH CYCLE; MOST RECENT DOSE PRIOR POST MICTURITION SYNCOPE SECOND EPISODE
     Route: 048
     Dates: start: 20161111
  36. PREDNISONE. [Suspect]
     Active Substance: PREDNISONE
     Dosage: DAY 1-5 OF EACH CYCLE; MOST RECENT DOSE
     Route: 048
     Dates: start: 20161224
  37. VENETOCLAX [Suspect]
     Active Substance: VENETOCLAX
     Dosage: MOST RECENT DOSE PRIOR TO ONSET SECOND EPISODE OF FEBRILE NEUTROPENIA AND GRADE 3 INFECTION OF UNKNO
     Route: 048
     Dates: start: 20161023
  38. THROMBO ASS [Concomitant]
     Active Substance: ASPIRIN
     Indication: THROMBOSIS PROPHYLAXIS
     Route: 065
  39. LYRICA [Concomitant]
     Active Substance: PREGABALIN
     Indication: ANXIETY DISORDER
     Route: 065
  40. EMEND [Concomitant]
     Active Substance: APREPITANT
     Indication: PROPHYLAXIS OF NAUSEA AND VOMITING
     Route: 065
     Dates: start: 20161014
  41. G-CSF [Concomitant]
     Active Substance: GRANULOCYTE COLONY-STIMULATING FACTOR NOS
     Indication: PRODUCT USED FOR UNKNOWN INDICATION
     Route: 065
  42. NEODOLPASSE [Concomitant]
     Indication: PAIN
     Route: 065
     Dates: start: 20160902, end: 20160902
  43. RITUXIMAB [Suspect]
     Active Substance: RITUXIMAB
     Indication: B-CELL LYMPHOMA
     Route: 042
     Dates: start: 20160902
  44. RITUXIMAB [Suspect]
     Active Substance: RITUXIMAB
     Dosage: 375 MG/M2 MOST RECENT DOSE PRIOR TO INFLUENZA INFECTION
     Route: 042
     Dates: start: 20161220
  45. VINCRISTINE [Suspect]
     Active Substance: VINCRISTINE
     Dosage: MOST RECENT DOSE PRIOR TO ONSET OF FIRST EPISODE OF POST MICTURITION SYNCOPE (PREVIOUSLY WAS SYNCOPE
     Route: 042
     Dates: start: 20161014
  46. VINCRISTINE [Suspect]
     Active Substance: VINCRISTINE
     Dosage: MOST RECENT DOSE PRIOR TO ONSET OF COMMON COLD AND THIRD FEBRILE NEUTROPENIA
     Route: 042
     Dates: start: 20161128
  47. PREDNISONE. [Suspect]
     Active Substance: PREDNISONE
     Dosage: DOSE REDUCED IN RESPONSE TO 2 ND EPISODE OF FEBRILE NEUTROPENIA
     Route: 048
  48. ZOFRAN [Concomitant]
     Active Substance: ONDANSETRON HYDROCHLORIDE
     Indication: PROPHYLAXIS OF NAUSEA AND VOMITING
     Route: 048
     Dates: start: 20160903
  49. RATIOGRASTIM [Concomitant]
     Active Substance: FILGRASTIM
     Route: 065
     Dates: start: 20161018, end: 20161020
  50. LOVENOX [Concomitant]
     Active Substance: ENOXAPARIN SODIUM
     Route: 065
     Dates: start: 20160923, end: 20160924
  51. VINCRISTINE [Suspect]
     Active Substance: VINCRISTINE
     Dosage: 1.4MG/M2; MOST RECENT DOSE PRIOR TO INFLUENZA INFECTION
     Route: 042
     Dates: start: 20161220
  52. PREDNISONE. [Suspect]
     Active Substance: PREDNISONE
     Indication: B-CELL LYMPHOMA
     Dosage: DAYS 1-5 OF EACH CYCLE
     Route: 048
     Dates: start: 20160902
  53. TAVANIC [Concomitant]
     Active Substance: LEVOFLOXACIN
     Indication: INFECTION PROPHYLAXIS
     Route: 065
     Dates: start: 20160906
  54. RATIOGRASTIM [Concomitant]
     Active Substance: FILGRASTIM
     Route: 065
     Dates: start: 20160927, end: 20161005

REACTIONS (10)
  - Neutropenia [Unknown]
  - Febrile neutropenia [Recovered/Resolved]
  - Febrile neutropenia [Recovered/Resolved]
  - Polydipsia psychogenic [Unknown]
  - Influenza [Recovered/Resolved]
  - Leukopenia [Unknown]
  - Syncope [Recovered/Resolved]
  - Infection [Recovered/Resolved]
  - Syncope [Recovered/Resolved]
  - Febrile neutropenia [Recovered/Resolved]

NARRATIVE: CASE EVENT DATE: 20161020
